FAERS Safety Report 8193362-3 (Version None)
Quarter: 2012Q1

REPORT INFORMATION
  Report Type: 
  Country: None (occurrence: None)
  Receive Date: 20120308
  Receipt Date: 20120229
  Transmission Date: 20120608
  Serious: Yes (Other)
  Sender: FDA-Public Use
  Company Number: US-JNJFOC-20120107575

PATIENT
  Sex: Female
  Weight: 60.78 kg

DRUGS (1)
  1. NUCYNTA [Suspect]
     Indication: PAIN
     Route: 048
     Dates: start: 20111229, end: 20111230

REACTIONS (4)
  - HALLUCINATION, AUDITORY [None]
  - NERVOUSNESS [None]
  - INSOMNIA [None]
  - LOSS OF CONSCIOUSNESS [None]
